FAERS Safety Report 6867429-3 (Version None)
Quarter: 2010Q3

REPORT INFORMATION
  Report Type: 
  Country: None (occurrence: None)
  Receive Date: 20100722
  Receipt Date: 20100719
  Transmission Date: 20110219
  Serious: Yes (Other)
  Sender: FDA-Public Use
  Company Number: FR-BRISTOL-MYERS SQUIBB COMPANY-15201858

PATIENT
  Age: 42 Year
  Sex: Male

DRUGS (4)
  1. PRAVIGARD PAC (COPACKAGED) [Suspect]
     Dates: start: 20080529, end: 20090430
  2. SECTRAL [Concomitant]
  3. PANTOPRAZOLE SODIUM [Concomitant]
  4. TRIATEC [Concomitant]

REACTIONS (1)
  - ALOPECIA [None]
